FAERS Safety Report 6460535-7 (Version None)
Quarter: 2009Q4

REPORT INFORMATION
  Report Type: 
  Country: None (occurrence: None)
  Receive Date: 20091130
  Receipt Date: 20091119
  Transmission Date: 20100525
  Serious: Yes (Hospitalization)
  Sender: FDA-Public Use
  Company Number: FR-JNJFOC-20091106714

PATIENT
  Age: 1 Day
  Weight: 3 kg

DRUGS (2)
  1. HALDOL [Suspect]
     Indication: DRUG EXPOSURE DURING PREGNANCY
  2. ANAFRANIL [Suspect]
     Indication: DRUG EXPOSURE DURING PREGNANCY

REACTIONS (4)
  - FEEDING DISORDER NEONATAL [None]
  - HYPOTONIA [None]
  - OESOPHAGITIS [None]
  - WEIGHT DECREASED [None]
